FAERS Safety Report 6424659-2 (Version None)
Quarter: 2009Q4

REPORT INFORMATION
  Report Type: 
  Country: None (occurrence: None)
  Receive Date: 20091029
  Receipt Date: 20091014
  Transmission Date: 20100525
  Serious: Yes (Other)
  Sender: FDA-Public Use
  Company Number: AUR-APL-2009-00921

PATIENT
  Age: 15 Year
  Sex: Female

DRUGS (1)
  1. FLUOXETINE [Suspect]
     Indication: MAJOR DEPRESSION
     Dosage: 20MG, DAILY

REACTIONS (5)
  - BRUXISM [None]
  - JOINT STIFFNESS [None]
  - MOVEMENT DISORDER [None]
  - PAIN IN JAW [None]
  - TOOTH FRACTURE [None]
